FAERS Safety Report 5640196-7 (Version None)
Quarter: 2008Q1

REPORT INFORMATION
  Report Type: 
  Country: None (occurrence: None)
  Receive Date: 20080225
  Receipt Date: 20080207
  Transmission Date: 20080703
  Serious: Yes (Disabling)
  Sender: FDA-Public Use
  Company Number: ENC200800025

PATIENT
  Age: 61 Year
  Sex: Male

DRUGS (16)
  1. ARGATROBAN [Suspect]
     Indication: CEREBRAL INFARCTION
     Dosage: 60 MG, QD, INTRAVENOUS, 10 MG, BID, INTRAVENOUE
     Route: 042
     Dates: start: 20071205, end: 20071206
  2. ARGATROBAN [Suspect]
     Indication: CEREBRAL INFARCTION
     Dosage: 60 MG, QD, INTRAVENOUS, 10 MG, BID, INTRAVENOUE
     Route: 042
     Dates: start: 20071207, end: 20071211
  3. ARGATROBAN [Suspect]
     Indication: CEREBRAL INFARCTION
     Dosage: 60 MG, QD, INTRAVENOUS, 10 MG, BID, INTRAVENOUE
     Route: 042
     Dates: start: 20080104, end: 20080110
  4. ARGATROBAN [Suspect]
     Indication: CEREBRAL INFARCTION
     Dosage: 60 MG, QD, INTRAVENOUS, 10 MG, BID, INTRAVENOUE
     Route: 042
     Dates: start: 20080119, end: 20080126
  5. RADICUT (EDARAVONE) [Suspect]
     Dosage: 30 MG, BID, INTRAVENOUS
     Route: 042
     Dates: start: 20071205, end: 20071218
  6. RADICUT (EDARAVONE) [Suspect]
     Dosage: 30 MG, BID, INTRAVENOUS
     Route: 042
     Dates: start: 20080104, end: 20080117
  7. WARFARIN SODIUM [Concomitant]
  8. ASPIRIN [Concomitant]
  9. NORVASC [Concomitant]
  10. CANDESARTAN CILEXETIL [Concomitant]
  11. ALLOPURINOL [Concomitant]
  12. ZANTAC 150 [Concomitant]
  13. METFORMIN HYDROCHLORIDE [Concomitant]
  14. BASEN (VOGLIBOSE) [Concomitant]
  15. DEPAS (ETIZOLAM) [Concomitant]
  16. LENDORM [Concomitant]

REACTIONS (7)
  - ANOREXIA [None]
  - CEREBRAL INFARCTION [None]
  - DIALYSIS [None]
  - DISEASE RECURRENCE [None]
  - HEMIPLEGIA [None]
  - NAUSEA [None]
  - RENAL FAILURE [None]
